FAERS Safety Report 6565988-1 (Version None)
Quarter: 2010Q1

REPORT INFORMATION
  Report Type: 
  Country: None (occurrence: None)
  Receive Date: 20100129
  Receipt Date: 20100129
  Transmission Date: 20100710
  Serious: Yes (Hospitalization)
  Sender: FDA-Public Use
  Company Number: None

PATIENT
  Age: 55 Year
  Sex: Male
  Weight: 186 kg

DRUGS (3)
  1. COLCHICINE [Suspect]
     Indication: GOUT
     Dosage: 1 TAB PO
     Route: 048
     Dates: start: 20080414, end: 20100125
  2. COLCHICINE [Suspect]
     Indication: PAIN
     Dosage: 1 TAB PO
     Route: 048
     Dates: start: 20080414, end: 20100125
  3. WARFARIN SODIUM [Suspect]
     Indication: ATRIAL FIBRILLATION
     Dosage: 10 MG EVERY DAY PO
     Route: 048
     Dates: start: 20070502, end: 20100125

REACTIONS (4)
  - DIARRHOEA [None]
  - DRUG INTERACTION [None]
  - INCORRECT DOSE ADMINISTERED [None]
  - INTERNATIONAL NORMALISED RATIO INCREASED [None]
